FAERS Safety Report 7673456-9 (Version None)
Quarter: 2011Q3

REPORT INFORMATION
  Report Type: 
  Country: None (occurrence: None)
  Receive Date: 20110810
  Receipt Date: 20110805
  Transmission Date: 20111222
  Serious: No
  Sender: FDA-Public Use
  Company Number: US-PFIZER INC-2011180014

PATIENT
  Sex: Male
  Weight: 95.238 kg

DRUGS (5)
  1. TAMSULOSIN [Concomitant]
     Dosage: UNK
  2. EFFEXOR XR [Suspect]
     Indication: DEPRESSION
     Dosage: 150 MG, 1X/DAY
     Route: 048
  3. ABILIFY [Concomitant]
     Dosage: UNK
  4. LIPITOR [Concomitant]
     Dosage: UNK
  5. METFORMIN [Concomitant]
     Dosage: UNK

REACTIONS (4)
  - FATIGUE [None]
  - SEDATION [None]
  - SEXUAL DYSFUNCTION [None]
  - DIZZINESS [None]
